FAERS Safety Report 21752206 (Version 2)
Quarter: 2023Q1

REPORT INFORMATION
  Report Type: Report from Study
  Country: BR (occurrence: BR)
  Receive Date: 20221220
  Receipt Date: 20230316
  Transmission Date: 20230418
  Serious: Yes (Other)
  Sender: FDA-Public Use
  Company Number: BR-CELLTRION INC.-2022BR020915

PATIENT

DRUGS (9)
  1. INFLIXIMAB [Suspect]
     Active Substance: INFLIXIMAB
     Indication: Crohn^s disease
     Dosage: 6 AMPOULES EVERY 8 WEEKS VIA ENDOVENOUS ROUTE
     Route: 042
     Dates: start: 202209
  2. INFLIXIMAB [Suspect]
     Active Substance: INFLIXIMAB
     Dosage: 6 AMPOULES EVERY 8 WEEKS VIA ENDOVENOUS ROUTE
     Route: 042
     Dates: start: 20230209
  3. DEXILANT [Concomitant]
     Active Substance: DEXLANSOPRAZOLE
     Dosage: 1 CAPSULE A DAY
     Route: 048
  4. PERINDOPRIL [Concomitant]
     Active Substance: PERINDOPRIL
     Dosage: 1 CAPSULE A WEEK
     Route: 048
  5. METFORMIN HYDROCHLORIDE [Concomitant]
     Active Substance: METFORMIN HYDROCHLORIDE
     Indication: Hypoglycaemia
     Dosage: 1 CAPSULE A DAY
     Route: 048
  6. DIACEREIN [Concomitant]
     Active Substance: DIACEREIN
     Indication: Rheumatoid arthritis
     Dosage: 1 CAPSULE A DAY
     Route: 048
  7. METHOTREXATE SODIUM [Concomitant]
     Active Substance: METHOTREXATE SODIUM
     Indication: Rheumatoid arthritis
     Dosage: 6 CAPSULES A WEEK
     Route: 048
  8. Cymbi [Concomitant]
     Indication: Rheumatoid arthritis
     Dosage: 1 CAPSULE A DAY
     Route: 048
  9. FOLIC ACID [Concomitant]
     Active Substance: FOLIC ACID
     Dosage: 1 CAPSULE A DAY
     Route: 048

REACTIONS (9)
  - Exposure to SARS-CoV-2 [Unknown]
  - Frequent bowel movements [Unknown]
  - General physical health deterioration [Unknown]
  - Erythema [Unknown]
  - Swelling [Unknown]
  - Peripheral swelling [Unknown]
  - Product distribution issue [Unknown]
  - Therapy interrupted [Unknown]
  - Intentional dose omission [Unknown]

NARRATIVE: CASE EVENT DATE: 20221116
